FAERS Safety Report 7434225-8 (Version None)
Quarter: 2011Q2

REPORT INFORMATION
  Report Type: 
  Country: None (occurrence: None)
  Receive Date: 20110425
  Receipt Date: 20110419
  Transmission Date: 20111010
  Serious: No
  Sender: FDA-Public Use
  Company Number: US-PFIZER INC-2011086423

PATIENT
  Sex: Female
  Weight: 63.5 kg

DRUGS (3)
  1. SOMA [Concomitant]
     Indication: MUSCLE DISORDER
     Dosage: 350 MG, 2X/DAY
     Route: 048
  2. DEPO-ESTRADIOL [Suspect]
     Indication: HORMONE REPLACEMENT THERAPY
     Dosage: UNK
  3. XANAX [Concomitant]
     Indication: NERVOUS SYSTEM DISORDER
     Dosage: 1 MG, 2X/DAY
     Route: 048

REACTIONS (2)
  - HEADACHE [None]
  - DRUG INEFFECTIVE [None]
